FAERS Safety Report 7708557-X (Version None)
Quarter: 2011Q3

REPORT INFORMATION
  Report Type: 
  Country: None (occurrence: None)
  Receive Date: 20110825
  Receipt Date: 20110817
  Transmission Date: 20111222
  Serious: Yes (Hospitalization, Other)
  Sender: FDA-Public Use
  Company Number: US-BAYER-201031251NA

PATIENT
  Sex: Female
  Weight: 57.143 kg

DRUGS (11)
  1. YAZ [Suspect]
     Indication: CONTRACEPTION
     Dosage: UNK UNK, UNK
     Route: 065
     Dates: start: 20070301, end: 20080601
  2. CYCLOBENZAPRINE [Concomitant]
     Dosage: 10 MG, UNK
  3. VICODIN [Concomitant]
     Indication: PAIN
  4. YAZ [Suspect]
     Indication: ACNE
     Dosage: UNK
     Dates: start: 20080810, end: 20080818
  5. COUMADIN [Concomitant]
  6. YAZ [Suspect]
     Dosage: UNK
     Dates: start: 20061001
  7. LOVENOX [Concomitant]
  8. ADVIL LIQUI-GELS [Concomitant]
  9. MORPHINE [Concomitant]
     Indication: PAIN
  10. FLEXERIL [Concomitant]
  11. OXYCODONE HCL [Concomitant]
     Indication: PAIN

REACTIONS (7)
  - DEEP VEIN THROMBOSIS [None]
  - GAIT DISTURBANCE [None]
  - PULMONARY EMBOLISM [None]
  - OEDEMA PERIPHERAL [None]
  - PAIN [None]
  - DEPRESSION [None]
  - BACK PAIN [None]
